FAERS Safety Report 5388913-8 (Version None)
Quarter: 2007Q3

REPORT INFORMATION
  Report Type: 
  Country: None (occurrence: None)
  Receive Date: 20070717
  Receipt Date: 20070710
  Transmission Date: 20080115
  Serious: Yes (Life-Threatening, Hospitalization, Disabling)
  Sender: FDA-Public Use
  Company Number: PHEH2007US09779

PATIENT
  Sex: Female

DRUGS (1)
  1. ZELNORM [Suspect]
     Indication: IRRITABLE BOWEL SYNDROME
     Dosage: 6 MG, TID
     Route: 048
     Dates: start: 20031211, end: 20051231

REACTIONS (5)
  - ARTERIAL DISORDER [None]
  - ARTERIAL OCCLUSIVE DISEASE [None]
  - CARDIAC DISORDER [None]
  - CARDIAC OPERATION [None]
  - ELECTROCARDIOGRAM ABNORMAL [None]
